FAERS Safety Report 6934268-4 (Version None)
Quarter: 2010Q3

REPORT INFORMATION
  Report Type: 
  Country: None (occurrence: None)
  Receive Date: 20100820
  Receipt Date: 20091002
  Transmission Date: 20110219
  Serious: Yes (Hospitalization)
  Sender: FDA-Public Use
  Company Number: US-US-EMD SERONO, INC.-600007E09USA

PATIENT
  Sex: Male

DRUGS (3)
  1. AS900672-ENRICHED [Suspect]
     Indication: INFERTILITY
     Route: 065
     Dates: start: 20071012, end: 20071019
  2. GONAL-F [Suspect]
     Indication: INFERTILITY
     Route: 065
  3. GONAL-F [Suspect]

REACTIONS (1)
  - CROUP INFECTIOUS [None]
